FAERS Safety Report 22063565 (Version 2)
Quarter: 2023Q1

REPORT INFORMATION
  Report Type: Other
  Country: CA (occurrence: None)
  Receive Date: 20230306
  Receipt Date: 20230308
  Transmission Date: 20230418
  Serious: Yes (Other)
  Sender: FDA-Public Use
  Company Number: CA-ROCHE-3297038

PATIENT
  Sex: Female

DRUGS (19)
  1. CELLCEPT [Suspect]
     Active Substance: MYCOPHENOLATE MOFETIL
     Indication: Scleroderma
     Route: 065
     Dates: start: 2018
  2. CELLCEPT [Suspect]
     Active Substance: MYCOPHENOLATE MOFETIL
     Indication: Interstitial lung disease
     Dosage: DRUG DOSE FIRST ADMINISTERED IS 750 MG MILLIGRAM(S)
     Route: 065
     Dates: start: 20220524, end: 20221002
  3. OFEV [Suspect]
     Active Substance: NINTEDANIB
     Indication: Product used for unknown indication
     Route: 065
     Dates: start: 202110, end: 2022
  4. OFEV [Suspect]
     Active Substance: NINTEDANIB
     Route: 065
     Dates: start: 2022
  5. PLAQUENIL [Suspect]
     Active Substance: HYDROXYCHLOROQUINE SULFATE
     Indication: Scleroderma
     Dosage: START DATE: /MAR/2022
     Route: 065
     Dates: start: 202003
  6. PLAQUENIL [Suspect]
     Active Substance: HYDROXYCHLOROQUINE SULFATE
     Indication: Interstitial lung disease
  7. SULFASALAZINE [Suspect]
     Active Substance: SULFASALAZINE
     Indication: Scleroderma
     Route: 065
  8. SULFASALAZINE [Suspect]
     Active Substance: SULFASALAZINE
     Indication: Interstitial lung disease
  9. FAMOTIDINE [Concomitant]
     Active Substance: FAMOTIDINE
     Indication: Product used for unknown indication
     Dosage: AT NIGHT
     Route: 065
  10. LANSOPRAZOLE [Concomitant]
     Active Substance: LANSOPRAZOLE
     Indication: Product used for unknown indication
     Dosage: DRUG DOSE FIRST ADMINISTERED IS 40 MG MILLIGRAM(S)
     Route: 065
  11. BISOPROLOL [Concomitant]
     Active Substance: BISOPROLOL
     Indication: Product used for unknown indication
     Dosage: DRUG DOSE FIRST ADMINISTERED IS 5 MG MILLIGRAM(S)
     Route: 065
  12. FERROUS GLUCONATE [Concomitant]
     Active Substance: FERROUS GLUCONATE
     Indication: Product used for unknown indication
  13. LEVOTHYROXINE SODIUM [Concomitant]
     Active Substance: LEVOTHYROXINE SODIUM
     Indication: Product used for unknown indication
  14. MYFORTIC [Concomitant]
     Active Substance: MYCOPHENOLATE SODIUM
     Indication: Product used for unknown indication
     Route: 065
     Dates: start: 202210
  15. MYFORTIC [Concomitant]
     Active Substance: MYCOPHENOLATE SODIUM
     Dates: start: 20221102, end: 20230214
  16. PRAVASTATIN [Concomitant]
     Active Substance: PRAVASTATIN
     Indication: Product used for unknown indication
  17. ERGOCALCIFEROL [Concomitant]
     Active Substance: ERGOCALCIFEROL
     Indication: Product used for unknown indication
  18. PREVACID [Concomitant]
     Active Substance: LANSOPRAZOLE
  19. HYDROCORTISONE ACETATE [Concomitant]
     Active Substance: HYDROCORTISONE ACETATE
     Indication: Product used for unknown indication
     Dates: start: 20221118

REACTIONS (14)
  - Interstitial lung disease [Unknown]
  - Fatigue [Unknown]
  - Asthenia [Unknown]
  - Hyperhidrosis [Unknown]
  - Dyspnoea [Unknown]
  - Dyspepsia [Unknown]
  - Diarrhoea [Unknown]
  - Arthralgia [Unknown]
  - Arthritis [Unknown]
  - Eczema [Unknown]
  - Malaise [Unknown]
  - Joint swelling [Unknown]
  - Modified Rodnan skin score abnormal [Unknown]
  - Off label use [Unknown]
